FAERS Safety Report 20785295 (Version 1)
Quarter: 2022Q2

REPORT INFORMATION
  Report Type: Spontaneous
  Country: US (occurrence: None)
  Receive Date: 20220504
  Receipt Date: 20220504
  Transmission Date: 20220720
  Serious: No
  Sender: FDA-Public Use
  Company Number: None

PATIENT
  Age: 74 Year
  Sex: Male
  Weight: 87.09 kg

DRUGS (1)
  1. ABIRATERONE [Suspect]
     Active Substance: ABIRATERONE
     Indication: Product used for unknown indication

REACTIONS (9)
  - Fall [None]
  - Road traffic accident [None]
  - Post-traumatic stress disorder [None]
  - Ataxia [None]
  - Symptom recurrence [None]
  - Vision blurred [None]
  - Balance disorder [None]
  - Dizziness [None]
  - Drug interaction [None]
